FAERS Safety Report 6688726-0 (Version None)
Quarter: 2010Q2

REPORT INFORMATION
  Report Type: 
  Country: None (occurrence: None)
  Receive Date: 20100420
  Receipt Date: 20100412
  Transmission Date: 20101027
  Serious: Yes (Hospitalization)
  Sender: FDA-Public Use
  Company Number: A0855530A

PATIENT
  Age: 53 Year
  Sex: Female

DRUGS (9)
  1. WELLBUTRIN [Suspect]
     Indication: DRUG USE FOR UNKNOWN INDICATION
     Route: 065
     Dates: start: 20080630
  2. CHANTIX [Suspect]
     Dosage: .5MG PER DAY
     Route: 048
     Dates: start: 20090201, end: 20090301
  3. TENORMIN [Concomitant]
     Dates: start: 20090205
  4. LISINOPRIL [Concomitant]
     Dates: start: 20090312
  5. ATENOLOL [Concomitant]
  6. CODEINE SULFATE [Concomitant]
  7. PARACETAMOL [Concomitant]
  8. LORAZEPAM [Concomitant]
  9. BLOOD PRESSURE MEDICATION [Concomitant]

REACTIONS (17)
  - BUNDLE BRANCH BLOCK [None]
  - CHRONIC OBSTRUCTIVE PULMONARY DISEASE [None]
  - CONVULSION [None]
  - COSTOCHONDRITIS [None]
  - CYSTITIS [None]
  - DRUG INTERACTION [None]
  - DYSPNOEA [None]
  - DYSPNOEA EXERTIONAL [None]
  - FATIGUE [None]
  - GOITRE [None]
  - LUNG DISORDER [None]
  - MUSCULOSKELETAL CHEST PAIN [None]
  - OEDEMA PERIPHERAL [None]
  - OXYGEN SATURATION DECREASED [None]
  - PUPILS UNEQUAL [None]
  - TONIC CLONIC MOVEMENTS [None]
  - VAGINAL HAEMORRHAGE [None]
